FAERS Safety Report 8182183-3 (Version None)
Quarter: 2012Q1

REPORT INFORMATION
  Report Type: 
  Country: None (occurrence: None)
  Receive Date: 20120302
  Receipt Date: 20120217
  Transmission Date: 20120608
  Serious: No
  Sender: FDA-Public Use
  Company Number: US-BAYER-2012-016960

PATIENT
  Sex: Female
  Weight: 86 kg

DRUGS (5)
  1. ALEVE (CAPLET) [Suspect]
     Indication: HEADACHE
     Dosage: 2 DF, PRN
     Route: 048
     Dates: start: 20120201, end: 20120217
  2. ASPIRIN [Suspect]
  3. FISH OIL [Concomitant]
  4. MULTI-VITAMINS [Concomitant]
  5. NAPROXEN SODIUM [Concomitant]

REACTIONS (3)
  - SNEEZING [None]
  - HEADACHE [None]
  - ABDOMINAL DISCOMFORT [None]
